FAERS Safety Report 19862856 (Version 1)
Quarter: 2021Q3

REPORT INFORMATION
  Report Type: Spontaneous
  Country: DE (occurrence: CN)
  Receive Date: 20210921
  Receipt Date: 20210921
  Transmission Date: 20211014
  Serious: Yes (Other)
  Sender: FDA-Public Use
  Company Number: CN-ELI_LILLY_AND_COMPANY-CN202109007305

PATIENT
  Age: 41 Year
  Sex: Male
  Weight: 50 kg

DRUGS (3)
  1. SODIUM CHLORIDE. [Concomitant]
     Active Substance: SODIUM CHLORIDE
     Indication: PRODUCT USED FOR UNKNOWN INDICATION
     Dosage: 250 ML, DAILY
     Route: 041
     Dates: start: 20210809, end: 20210809
  2. ERBITUX [Suspect]
     Active Substance: CETUXIMAB
     Indication: RECTAL CANCER
     Dosage: 0.8 G, UNKNOWN
     Route: 041
     Dates: start: 20210809, end: 20210809
  3. ERBITUX [Suspect]
     Active Substance: CETUXIMAB
     Dosage: 0.8 G, UNKNOWN
     Route: 041

REACTIONS (1)
  - Seborrhoeic dermatitis [Recovering/Resolving]

NARRATIVE: CASE EVENT DATE: 20210819
